FAERS Safety Report 7135909-1 (Version None)
Quarter: 2010Q4

REPORT INFORMATION
  Report Type: 
  Country: None (occurrence: None)
  Receive Date: 20101204
  Receipt Date: 20101124
  Transmission Date: 20110411
  Serious: Yes (Other)
  Sender: FDA-Public Use
  Company Number: US-BAYER-2010-000442

PATIENT

DRUGS (1)
  1. YASMIN [Suspect]

REACTIONS (3)
  - DEEP VEIN THROMBOSIS [None]
  - GALLBLADDER INJURY [None]
  - MULTIPLE INJURIES [None]
